FAERS Safety Report 8236589-4 (Version None)
Quarter: 2012Q1

REPORT INFORMATION
  Report Type: 
  Country: None (occurrence: None)
  Receive Date: 20120326
  Receipt Date: 20120326
  Transmission Date: 20120608
  Serious: No
  Sender: FDA-Public Use
  Company Number: None

PATIENT
  Sex: Female
  Weight: 52.1637 kg

DRUGS (1)
  1. CLINDAMYCIN [Suspect]

REACTIONS (4)
  - DIARRHOEA [None]
  - BLOOD PRESSURE DECREASED [None]
  - CLOSTRIDIAL INFECTION [None]
  - RASH [None]
